FAERS Safety Report 11720064 (Version 2)
Quarter: 2015Q4

REPORT INFORMATION
  Report Type: Report from Study
  Country: BR (occurrence: BR)
  Receive Date: 20151110
  Receipt Date: 20151118
  Transmission Date: 20160304
  Serious: Yes (Death, Hospitalization)
  Sender: FDA-Public Use
  Company Number: BR-ROCHE-1403826

PATIENT
  Sex: Female
  Weight: 49 kg

DRUGS (6)
  1. NEBILET [Concomitant]
     Active Substance: NEBIVOLOL
  2. INSULIN [Concomitant]
     Active Substance: INSULIN NOS
     Route: 065
  3. TYLENOL [Concomitant]
     Active Substance: ACETAMINOPHEN
  4. ACTEMRA [Suspect]
     Active Substance: TOCILIZUMAB
     Indication: RHEUMATOID ARTHRITIS
     Route: 042
     Dates: start: 20131003, end: 201408
  5. LOSARTAN. [Concomitant]
     Active Substance: LOSARTAN
  6. DIPYRONE [Concomitant]
     Active Substance: DIPYRONE

REACTIONS (7)
  - Malaise [Unknown]
  - Pneumonia [Fatal]
  - Acute kidney injury [Fatal]
  - Diabetes mellitus [Unknown]
  - Coronary artery insufficiency [Fatal]
  - Erysipelas [Unknown]
  - Septic shock [Fatal]
